FAERS Safety Report 13793433 (Version 1)
Quarter: 2017Q3

REPORT INFORMATION
  Report Type: Spontaneous
  Country: US (occurrence: US)
  Receive Date: 20170726
  Receipt Date: 20170726
  Transmission Date: 20171127
  Serious: No
  Sender: FDA-Public Use
  Company Number: US-BIOGEN-2017BI00434271

PATIENT
  Age: 39 Year
  Sex: Female

DRUGS (1)
  1. TYSABRI [Suspect]
     Active Substance: NATALIZUMAB
     Indication: MULTIPLE SCLEROSIS
     Route: 065

REACTIONS (6)
  - Abdominal discomfort [Unknown]
  - Feeling abnormal [Unknown]
  - Vertigo [Unknown]
  - Influenza [Unknown]
  - Speech disorder [Unknown]
  - Fatigue [Unknown]
